FAERS Safety Report 6502944-3 (Version None)
Quarter: 2009Q4

REPORT INFORMATION
  Report Type: 
  Country: None (occurrence: None)
  Receive Date: 20091217
  Receipt Date: 20091207
  Transmission Date: 20100525
  Serious: Yes (Hospitalization, Other)
  Sender: FDA-Public Use
  Company Number: PHHY2009CA49322

PATIENT
  Sex: Male

DRUGS (8)
  1. CLOZARIL [Suspect]
     Indication: SCHIZOPHRENIA
     Dosage: UNK
     Dates: start: 20080308
  2. LIPITOR [Concomitant]
     Dosage: 20 MG, UNK
  3. ASPIRIN [Concomitant]
     Dosage: 80 MG, UNK
  4. METFORMIN HCL [Concomitant]
     Dosage: 850 MG, TID
  5. DIABETA [Concomitant]
     Dosage: 2.5 AM
  6. DALMANE [Concomitant]
     Dosage: 30 UNK, QHS
  7. MOTILIUM [Concomitant]
     Dosage: 10 UNK, QHS
  8. HISTANTIL [Concomitant]
     Dosage: 50 UNK, QHS

REACTIONS (8)
  - CARDIAC FAILURE [None]
  - CARDIOMYOPATHY [None]
  - DIABETES MELLITUS [None]
  - DYSPNOEA EXERTIONAL [None]
  - LEFT VENTRICULAR DYSFUNCTION [None]
  - LEFT VENTRICULAR HYPERTROPHY [None]
  - LUNG DISORDER [None]
  - ORTHOPNOEA [None]
